FAERS Safety Report 4695896-2 (Version None)
Quarter: 2005Q2

REPORT INFORMATION
  Report Type: 
  Country: None (occurrence: None)
  Receive Date: 20050621
  Receipt Date: 20050608
  Transmission Date: 20051028
  Serious: Yes (Hospitalization, Other)
  Sender: FDA-Public Use
  Company Number: US-GLAXOSMITHKLINE-A0561721A

PATIENT
  Age: 76 Year
  Sex: Female
  Weight: 74 kg

DRUGS (5)
  1. TAGAMET [Suspect]
     Dosage: 200MG PER DAY
     Route: 048
     Dates: start: 20020101
  2. AVANDIA [Concomitant]
     Route: 048
  3. ASPIRIN [Concomitant]
     Route: 048
  4. PLAVIX [Concomitant]
  5. LIPITOR [Concomitant]

REACTIONS (3)
  - ANOREXIA [None]
  - GASTRIC ULCER [None]
  - WEIGHT DECREASED [None]
